FAERS Safety Report 4585629-2 (Version None)
Quarter: 2005Q1

REPORT INFORMATION
  Report Type: 
  Country: None (occurrence: None)
  Receive Date: 20050214
  Receipt Date: 20050201
  Transmission Date: 20050727
  Serious: Yes (Hospitalization, Other)
  Sender: FDA-Public Use
  Company Number: 2005024105

PATIENT
  Age: 84 Year
  Sex: Male

DRUGS (1)
  1. VIAGRA [Suspect]
     Indication: ERECTILE DYSFUNCTION
     Dosage: 50 MG (50 MG) ORAL
     Route: 048
     Dates: start: 20000417

REACTIONS (5)
  - BLOOD PRESSURE DECREASED [None]
  - DRUG EFFECT DECREASED [None]
  - GAIT DISTURBANCE [None]
  - GASTROINTESTINAL HAEMORRHAGE [None]
  - PROSTATE CANCER [None]
